FAERS Safety Report 5400638-9 (Version None)
Quarter: 2007Q3

REPORT INFORMATION
  Report Type: 
  Country: None (occurrence: None)
  Receive Date: 20070724
  Receipt Date: 20070711
  Transmission Date: 20080115
  Serious: Yes (Death, Other)
  Sender: FDA-Public Use
  Company Number: 2007-00436

PATIENT
  Age: 62 Year
  Sex: Female

DRUGS (20)
  1. VELCADE [Suspect]
     Indication: MULTIPLE MYELOMA
     Dosage: 1.30 MG/M2,
     Dates: start: 20070116, end: 20070116
  2. DEXAMETHASONE 0.5MG TAB [Concomitant]
  3. AMOBAN (ZOPICLONE) [Concomitant]
  4. CARBAMAZEPINE [Concomitant]
  5. LOXONIN (LOXOPROFEN SODIUM) [Concomitant]
  6. NOVAMIN (PROCHLORPERAZINE) [Concomitant]
  7. OXYCONTIN [Concomitant]
  8. MAG-LAX           (MAGNESIUM HYDROXIDE, PARAFFIN, LIQUID) [Concomitant]
  9. PURSENNID   (SENNA LEAF) [Concomitant]
  10. FUROSEMIDE [Concomitant]
  11. SULFAMETHOXAZOLE + TRIMETHOPRIM [Concomitant]
  12. HEPARIN SODIUM [Concomitant]
  13. LASIX [Concomitant]
  14. MEROPEN    (MEROPENEM) [Concomitant]
  15. VENOGLOBULIN [Concomitant]
  16. NEUTROGIN [Concomitant]
  17. PAXIL [Concomitant]
  18. DESYREL [Concomitant]
  19. ABILIT           (SULPIRIDE) [Concomitant]
  20. MEILAX            (ETHYL LOFLAZEPATE) [Concomitant]

REACTIONS (7)
  - ANAEMIA [None]
  - CARDIAC FAILURE CONGESTIVE [None]
  - DEPRESSION [None]
  - MALIGNANT NEOPLASM PROGRESSION [None]
  - MULTIPLE MYELOMA [None]
  - PNEUMONIA [None]
  - PULMONARY OEDEMA [None]
